FAERS Safety Report 23766885 (Version 2)
Quarter: 2024Q2

REPORT INFORMATION
  Report Type: Spontaneous
  Country: CA (occurrence: CA)
  Receive Date: 20240422
  Receipt Date: 20240426
  Transmission Date: 20240716
  Serious: Yes (Hospitalization)
  Sender: FDA-Public Use
  Company Number: CA-MLMSERVICE-20240409-PI019655-00119-1

PATIENT
  Age: 7 Decade
  Sex: Female

DRUGS (2)
  1. DIAZEPAM [Suspect]
     Active Substance: DIAZEPAM
     Indication: Depression
     Route: 065
  2. DULOXETINE [Concomitant]
     Active Substance: DULOXETINE
     Indication: Depression
     Route: 065

REACTIONS (2)
  - Drug withdrawal convulsions [Recovered/Resolved]
  - Postictal psychosis [Recovered/Resolved]
